FAERS Safety Report 9397604 (Version 1)
Quarter: 2013Q3

REPORT INFORMATION
  Report Type: Spontaneous
  Country: US (occurrence: US)
  Receive Date: 20130712
  Receipt Date: 20130712
  Transmission Date: 20140515
  Serious: Yes (Hospitalization)
  Sender: FDA-Public Use
  Company Number: US-SANOFI-AVENTIS-2012SA078831

PATIENT
  Age: 61 Year
  Sex: Female
  Weight: 81.64 kg

DRUGS (6)
  1. DRISDOL [Suspect]
     Indication: VITAMIN D DECREASED
     Dosage: 4 CAPSULE PER WEEK
     Route: 065
     Dates: start: 201205, end: 201205
  2. GABAPENTIN [Concomitant]
     Indication: PROPHYLAXIS
  3. POTASSIUM [Concomitant]
  4. NEXIUM [Concomitant]
  5. TRIMETHOPRIM [Concomitant]
     Indication: BLOOD PRESSURE
  6. DORZOLAMIDE HYDROCHLORIDE/TIMOLOL MALEATE [Concomitant]
     Indication: GLAUCOMA

REACTIONS (5)
  - Periarthritis [Unknown]
  - Rotator cuff syndrome [Unknown]
  - Musculoskeletal pain [Not Recovered/Not Resolved]
  - Blister [Not Recovered/Not Resolved]
  - Arthralgia [Not Recovered/Not Resolved]
